FAERS Safety Report 9336629 (Version 3)
Quarter: 2013Q3

REPORT INFORMATION
  Report Type: Report from Study
  Country: US (occurrence: US)
  Receive Date: 20130607
  Receipt Date: 20130701
  Transmission Date: 20140515
  Serious: Yes (Other)
  Sender: FDA-Public Use
  Company Number: PHEH2013US012313

PATIENT
  Age: 76 Year
  Sex: Female
  Weight: 52.15 kg

DRUGS (15)
  1. TOBI [Suspect]
     Indication: PNEUMONIA
     Dosage: 300 MG, BID (28 DAYS ON 28 DAYS OFF)
     Dates: start: 20130306, end: 20130611
  2. TOBI [Suspect]
     Indication: PSEUDOMONAS INFECTION
  3. SYMBICORT [Concomitant]
     Dosage: 1 DF, BID
     Dates: start: 20130219
  4. XOPENEX [Concomitant]
     Dosage: 1 DF, TID-QID PM
     Dates: start: 20120424
  5. DALIRESP [Concomitant]
     Dosage: 1 DF, QD TAKE ONE TABLET BY MOUTH
     Route: 048
     Dates: start: 20111111
  6. PROVENTIL HFA [Concomitant]
     Dosage: UNK, QID, 2 PUFF PM
     Dates: start: 20091231
  7. NASONEX [Concomitant]
     Dosage: 1 DF, QD, 2 SPRAYS EACH NOSTRIL
     Dates: start: 20090119
  8. TUSSI-12 [Concomitant]
     Dosage: UNK, 1-2 TAB Q 12 HOUR PM.
     Route: 048
     Dates: start: 20060522
  9. LIPITOR [Concomitant]
     Dosage: 1 DF, QD
     Route: 048
     Dates: start: 20051018
  10. SPIRIVA HANDIHALER [Concomitant]
     Dosage: 1 DF, INHALE THE CONTENT OF ONE CAPSULE
     Dates: start: 20051018
  11. PLAVIX [Concomitant]
     Dosage: 1 DF, QD
     Route: 048
     Dates: start: 20051018
  12. XANAX [Concomitant]
     Dosage: 1 DF, BID, PM
     Route: 048
     Dates: start: 20051018
  13. HYDROXYZINE HYDROCHLORIDE [Concomitant]
     Dosage: 25 MG, TID, PM
     Route: 048
  14. ZOCOR [Concomitant]
     Dosage: 80 MG, UNK
  15. POTASSIUM CHLORIDE [Concomitant]
     Dosage: UNK

REACTIONS (7)
  - Oxygen saturation decreased [Not Recovered/Not Resolved]
  - Confusional state [Unknown]
  - Memory impairment [Unknown]
  - Dyspnoea [Recovered/Resolved]
  - Dysgeusia [Unknown]
  - Malaise [Not Recovered/Not Resolved]
  - Weight decreased [Unknown]
